FAERS Safety Report 6857661-7 (Version None)
Quarter: 2010Q3

REPORT INFORMATION
  Report Type: 
  Country: None (occurrence: None)
  Receive Date: 20100719
  Receipt Date: 20080401
  Transmission Date: 20110219
  Serious: No
  Sender: FDA-Public Use
  Company Number: US-PFIZER INC-2008009030

PATIENT
  Sex: Female
  Weight: 68.2 kg

DRUGS (11)
  1. CHANTIX [Suspect]
     Indication: SMOKING CESSATION THERAPY
     Route: 048
     Dates: start: 20080120, end: 20080130
  2. CYMBALTA [Concomitant]
  3. PREMARIN [Concomitant]
  4. CLONAZEPAM [Concomitant]
  5. ATENOLOL [Concomitant]
  6. MACROGOL [Concomitant]
  7. LYRICA [Concomitant]
  8. METHOCARBAMOL [Concomitant]
  9. ULTRAM [Concomitant]
  10. IBANDRONATE SODIUM [Concomitant]
  11. ALL OTHER THERAPEUTIC PRODUCTS [Concomitant]

REACTIONS (1)
  - RASH [None]
